FAERS Safety Report 19040519 (Version 1)
Quarter: 2021Q1

REPORT INFORMATION
  Report Type: Other
  Country: JP (occurrence: JP)
  Receive Date: 20210323
  Receipt Date: 20210323
  Transmission Date: 20210420
  Serious: Yes (Death, Other)
  Sender: FDA-Public Use
  Company Number: JP-ROCHE-2789846

PATIENT
  Age: 37 Year
  Sex: Female

DRUGS (2)
  1. OSELTAMIVIR [Suspect]
     Active Substance: OSELTAMIVIR
     Indication: INFLUENZA
     Route: 065
  2. FLOMOXEF [Concomitant]
     Active Substance: FLOMOXEF

REACTIONS (4)
  - Haemorrhage [Unknown]
  - Cardio-respiratory arrest [Fatal]
  - Abortion spontaneous [Unknown]
  - Maternal exposure during pregnancy [Unknown]
